FAERS Safety Report 9809188 (Version 2)
Quarter: 2014Q1

REPORT INFORMATION
  Report Type: Spontaneous
  Country: BR (occurrence: BR)
  Receive Date: 20140110
  Receipt Date: 20140319
  Transmission Date: 20141002
  Serious: Yes (Other)
  Sender: FDA-Public Use
  Company Number: PHHY2014BR002625

PATIENT
  Sex: Male
  Weight: 108 kg

DRUGS (2)
  1. GILENYA [Suspect]
     Indication: MULTIPLE SCLEROSIS
     Dosage: 0.5 MG, QD
     Route: 048
  2. TRILEPTAL [Concomitant]
     Dosage: 2 DF, QD
     Route: 048

REACTIONS (1)
  - Convulsion [Recovered/Resolved]
